FAERS Safety Report 7233195-5 (Version None)
Quarter: 2011Q1

REPORT INFORMATION
  Report Type: 
  Country: None (occurrence: None)
  Receive Date: 20110119
  Receipt Date: 20110114
  Transmission Date: 20110831
  Serious: Yes (Death, Hospitalization)
  Sender: FDA-Public Use
  Company Number: A0905107A

PATIENT
  Age: 79 Year
  Sex: Male
  Weight: 72.7 kg

DRUGS (6)
  1. ASPIRIN [Concomitant]
     Dosage: 81MG PER DAY
     Route: 048
     Dates: start: 20091123
  2. COMPAZINE [Concomitant]
     Dosage: 10MG AS REQUIRED
     Route: 048
     Dates: start: 20100915
  3. FLOMAX [Concomitant]
     Dosage: .4MG PER DAY
     Route: 048
     Dates: start: 20090112
  4. FLUNISOLIDE [Concomitant]
     Route: 045
     Dates: start: 20090112
  5. PAZOPANIB [Suspect]
     Indication: NON-SMALL CELL LUNG CANCER
     Dosage: 800MG TWICE PER DAY
     Route: 048
     Dates: start: 20100602, end: 20101207
  6. MULTI-VITAMIN [Concomitant]
     Route: 048
     Dates: start: 20090112

REACTIONS (7)
  - HYPOTENSION [None]
  - CONFUSIONAL STATE [None]
  - ACUTE MYELOID LEUKAEMIA [None]
  - MULTI-ORGAN FAILURE [None]
  - HYPOXIA [None]
  - PNEUMONIA [None]
  - SYSTEMIC INFLAMMATORY RESPONSE SYNDROME [None]
